FAERS Safety Report 7092511-8 (Version None)
Quarter: 2010Q4

REPORT INFORMATION
  Report Type: 
  Country: None (occurrence: None)
  Receive Date: 20101108
  Receipt Date: 20101108
  Transmission Date: 20110411
  Serious: No
  Sender: FDA-Public Use
  Company Number: None

PATIENT
  Age: 48 Year
  Sex: Female
  Weight: 74.8435 kg

DRUGS (2)
  1. CYMBALTA [Suspect]
     Indication: FIBROMYALGIA
     Dosage: 75 MG 2 TIMES A DAY PO
     Route: 048
     Dates: start: 20020101, end: 20101110
  2. CYMBALTA [Suspect]
     Indication: PAIN
     Dosage: 75 MG 2 TIMES A DAY PO
     Route: 048
     Dates: start: 20020101, end: 20101110

REACTIONS (5)
  - DRUG DOSE OMISSION [None]
  - DRUG WITHDRAWAL SYNDROME [None]
  - PARAESTHESIA [None]
  - TREATMENT NONCOMPLIANCE [None]
  - WEIGHT INCREASED [None]
